FAERS Safety Report 5008679-0 (Version None)
Quarter: 2006Q2

REPORT INFORMATION
  Report Type: 
  Country: None (occurrence: None)
  Receive Date: 20060523
  Receipt Date: 20060512
  Transmission Date: 20061013
  Serious: Yes (Congenital Anomaly)
  Sender: FDA-Public Use
  Company Number: US-GLAXOSMITHKLINE-B0424120A

PATIENT

DRUGS (6)
  1. ZIDOVUDINE [Suspect]
  2. LAMIVUDINE [Suspect]
  3. DIDANOSINE [Suspect]
  4. NELFINAVIR [Suspect]
  5. RITONAVIR [Suspect]
  6. SUSTIVA [Suspect]

REACTIONS (2)
  - CHORDEE [None]
  - HYPOSPADIAS [None]
